FAERS Safety Report 8691799 (Version 4)
Quarter: 2013Q1

REPORT INFORMATION
  Report Type: Spontaneous
  Country: DE (occurrence: None)
  Receive Date: 20120712
  Receipt Date: 20130311
  Transmission Date: 20140127
  Serious: Yes (Death)
  Sender: FDA-Public Use
  Company Number: 2012032822

PATIENT
  Age: 70 Year
  Sex: Female

DRUGS (4)
  1. PRIVIGEN [Suspect]
     Indication: SECONDARY IMMUNODEFICIENCY
     Dosage: 10 G QD
     Route: 042
     Dates: start: 20120628, end: 20120628
  2. LEVOTHYROXINE SODIUM [Concomitant]
  3. ACTRAPID (INSULIN HUMAN) [Concomitant]
  4. RAMIPRIL [Concomitant]

REACTIONS (1)
  - Death [None]
